FAERS Safety Report 6915245-6 (Version None)
Quarter: 2010Q3

REPORT INFORMATION
  Report Type: 
  Country: None (occurrence: None)
  Receive Date: 20100806
  Receipt Date: 20100806
  Transmission Date: 20110219
  Serious: No
  Sender: FDA-Public Use
  Company Number: None

PATIENT
  Age: 54 Year
  Sex: Female
  Weight: 40.8237 kg

DRUGS (1)
  1. REMICADE [Suspect]
     Indication: CROHN'S DISEASE
     Dosage: 230 MG OVER 2 HOURS -I THINK-  EVERY 12 WKS IV DRIP
     Route: 041
     Dates: start: 20020801, end: 20061101

REACTIONS (1)
  - CARDIAC FAILURE CONGESTIVE [None]
